FAERS Safety Report 4593979-9 (Version None)
Quarter: 2005Q1

REPORT INFORMATION
  Report Type: 
  Country: None (occurrence: None)
  Receive Date: 20050218
  Receipt Date: 20050204
  Transmission Date: 20050727
  Serious: Yes (Hospitalization, Disabling)
  Sender: FDA-Public Use
  Company Number: 2005028403

PATIENT
  Sex: Female

DRUGS (1)
  1. NICOTINE [Suspect]
     Indication: NICOTINE DEPENDENCE
     Dosage: TRANSDERMAL
     Route: 062

REACTIONS (2)
  - CARDIOVASCULAR DISORDER [None]
  - LEG AMPUTATION [None]
